FAERS Safety Report 7012904-4 (Version None)
Quarter: 2010Q3

REPORT INFORMATION
  Report Type: 
  Country: None (occurrence: None)
  Receive Date: 20100924
  Receipt Date: 20100913
  Transmission Date: 20110219
  Serious: Yes (Other)
  Sender: FDA-Public Use
  Company Number: CN-PFIZER INC-2010115566

PATIENT
  Age: 16 Year
  Sex: Male

DRUGS (7)
  1. SOLU-MEDROL [Suspect]
     Indication: IDIOPATHIC THROMBOCYTOPENIC PURPURA
     Dosage: 250 MG, 1X/DAY
     Route: 041
     Dates: start: 20100720, end: 20100726
  2. SOLU-MEDROL [Suspect]
     Dosage: 120 MG, 1X/DAY
     Route: 041
     Dates: start: 20100727, end: 20100729
  3. SOLU-MEDROL [Suspect]
     Dosage: 80 MG, 1X/DAY
     Route: 041
     Dates: start: 20100730, end: 20100801
  4. DEXAMETHASONE SODIUM PHOSPHATE [Concomitant]
     Dosage: 3 G, Q8H
     Route: 041
     Dates: start: 20100717
  5. GLUTATHIONE [Concomitant]
     Dosage: 1.8 G, 1X/DAY
     Route: 041
     Dates: start: 20100719
  6. PANTOPRAZOLE SODIUM [Concomitant]
     Dosage: 80 MG, 2X/DAY
     Route: 041
     Dates: start: 20100720
  7. PANTOPRAZOLE SODIUM [Concomitant]
     Dosage: 20 MG, 1X/DAY
     Route: 048
     Dates: start: 20100717

REACTIONS (1)
  - HEPATIC LESION [None]
